FAERS Safety Report 13725530 (Version 1)
Quarter: 2017Q3

REPORT INFORMATION
  Report Type: Spontaneous
  Country: US (occurrence: US)
  Receive Date: 20170706
  Receipt Date: 20170706
  Transmission Date: 20171127
  Serious: Yes (Other)
  Sender: FDA-Public Use
  Company Number: None

PATIENT
  Age: 36 Year
  Sex: Female
  Weight: 94 kg

DRUGS (4)
  1. DEXAMETHASONE. [Concomitant]
     Active Substance: DEXAMETHASONE
  2. FOSAPREPITANT [Concomitant]
     Active Substance: FOSAPREPITANT
  3. EMEND [Suspect]
     Active Substance: APREPITANT
     Indication: PROPHYLAXIS OF NAUSEA AND VOMITING
     Dosage: ?          OTHER DOSE:MG;OTHER FREQUENCY:ONCE;?
     Route: 042
     Dates: start: 20170508, end: 20170508
  4. PALONOSETRON [Concomitant]
     Active Substance: PALONOSETRON

REACTIONS (4)
  - Dyspepsia [None]
  - Chest discomfort [None]
  - Dyspnoea [None]
  - Infusion related reaction [None]

NARRATIVE: CASE EVENT DATE: 20170508
